FAERS Safety Report 5604031-5 (Version None)
Quarter: 2008Q1

REPORT INFORMATION
  Report Type: 
  Country: None (occurrence: None)
  Receive Date: 20080128
  Receipt Date: 20080118
  Transmission Date: 20080703
  Serious: No
  Sender: FDA-Public Use
  Company Number: PHBS2007BR21014

PATIENT
  Age: 1 Year
  Sex: Female
  Weight: 8 kg

DRUGS (1)
  1. EXELON [Suspect]
     Dosage: 6 TABLETS, ONCE/SINGLE
     Route: 048
     Dates: start: 20071214, end: 20071214

REACTIONS (8)
  - ACCIDENTAL DRUG INTAKE BY CHILD [None]
  - AGITATION [None]
  - APTYALISM [None]
  - DIARRHOEA [None]
  - NAUSEA [None]
  - TACHYCARDIA [None]
  - TREMOR [None]
  - VOMITING [None]
